FAERS Safety Report 4873253-3 (Version None)
Quarter: 2005Q4

REPORT INFORMATION
  Report Type: 
  Country: None (occurrence: None)
  Receive Date: 20051201
  Receipt Date: 20050818
  Transmission Date: 20060501
  Serious: No
  Sender: FDA-Public Use
  Company Number: 2005PV001287

PATIENT
  Age: 60 Year
  Sex: Female
  Weight: 82.5547 kg

DRUGS (6)
  1. BYETTA [Suspect]
     Indication: DIABETES MELLITUS
     Dosage: 5 MCG; BID; SC; 10 MCG; SC
     Route: 058
     Dates: start: 20050716, end: 20050815
  2. BYETTA [Suspect]
     Indication: DIABETES MELLITUS
     Dosage: 5 MCG; BID; SC; 10 MCG; SC
     Route: 058
     Dates: start: 20050816
  3. LANTUS [Concomitant]
  4. HUMALOG [Concomitant]
  5. ASACOL [Concomitant]
  6. TRAMADOL/APAP [Concomitant]

REACTIONS (5)
  - HEADACHE [None]
  - INSOMNIA [None]
  - NAUSEA [None]
  - VERTIGO [None]
  - WEIGHT DECREASED [None]
